FAERS Safety Report 9515251 (Version 1)
Quarter: 2013Q1

REPORT INFORMATION
  Report Type: Spontaneous
  Country: US (occurrence: None)
  Receive Date: 20130305
  Receipt Date: 20130305
  Transmission Date: 20140127
  Serious: Yes (Hospitalization)
  Sender: FDA-Public Use
  Company Number: 163-21880-12101882

PATIENT
  Age: 77 Year
  Sex: Female
  Weight: 53.07 kg

DRUGS (17)
  1. REVLIMID [Suspect]
     Indication: PLASMA CELL MYELOMA
     Dosage: 21 IN 21 D
     Route: 048
     Dates: start: 201208
  2. ALEVE (NAPROXEN SODIUM) [Concomitant]
  3. AREDIA (PAMIDRONATE DISODIUM) [Concomitant]
  4. CENTRUM (CENTRUM) [Concomitant]
  5. CYMBALTA (DULOXETINE HYDROCHLORIDE) [Concomitant]
  6. DECADRON (DEXAMETHASONE) [Concomitant]
  7. POTASSIUM (POTASSIUM) [Concomitant]
  8. SYNTHROID (LEVOTHYROXINE SODIUM) [Concomitant]
  9. ATIVAN (LORAZEPAM) [Concomitant]
  10. MS CONTIN [Concomitant]
  11. OXYCODONE (OXYCODONE) [Concomitant]
  12. NASONEX (MOMETASONE FUROATE) [Concomitant]
  13. SINGULAIR [Concomitant]
  14. PROCRIT [Concomitant]
  15. PROTONIX [Concomitant]
  16. TOPAMAX (TOPIRAMATE) [Concomitant]
  17. REQUIP (ROPINIROLE HYDROCHLORIDE) [Concomitant]

REACTIONS (1)
  - Renal failure [None]
